FAERS Safety Report 10790707 (Version 2)
Quarter: 2015Q1

REPORT INFORMATION
  Report Type: Spontaneous
  Country: DK (occurrence: GB)
  Receive Date: 20150212
  Receipt Date: 20150223
  Transmission Date: 20150721
  Serious: Yes (Life-Threatening, Hospitalization, Disabling, Other)
  Sender: FDA-Public Use
  Company Number: GB-FRI-1000074357

PATIENT
  Age: 53 Year
  Sex: Female

DRUGS (5)
  1. NORTRIPTYLINE [Interacting]
     Active Substance: NORTRIPTYLINE
     Indication: PAIN
     Dosage: 100 MG DAILY
     Route: 048
     Dates: start: 2002
  2. CODEINE [Concomitant]
     Active Substance: CODEINE
     Indication: PRODUCT USED FOR UNKNOWN INDICATION
     Route: 065
     Dates: start: 2000
  3. CITALOPRAM [Suspect]
     Active Substance: CITALOPRAM HYDROBROMIDE
     Indication: PRODUCT USED FOR UNKNOWN INDICATION
     Dosage: 20 MG ONCE DAILY
     Route: 048
     Dates: start: 2002
  4. OMEPRAZOLE. [Concomitant]
     Active Substance: OMEPRAZOLE
     Indication: PRODUCT USED FOR UNKNOWN INDICATION
     Route: 065
     Dates: start: 2001
  5. RANITIDINE [Interacting]
     Active Substance: RANITIDINE\RANITIDINE HYDROCHLORIDE
     Indication: PRODUCT USED FOR UNKNOWN INDICATION
     Route: 065

REACTIONS (5)
  - Drug interaction [Unknown]
  - Cardiac arrest [Recovered/Resolved with Sequelae]
  - Ventricular arrhythmia [Not Recovered/Not Resolved]
  - Hypertension [Unknown]
  - Long QT syndrome [Recovering/Resolving]

NARRATIVE: CASE EVENT DATE: 2004
